FAERS Safety Report 5747849-0 (Version None)
Quarter: 2008Q2

REPORT INFORMATION
  Report Type: 
  Country: None (occurrence: None)
  Receive Date: 20080523
  Receipt Date: 20080515
  Transmission Date: 20081010
  Serious: Yes (Other)
  Sender: FDA-Public Use
  Company Number: US-MERCK-0709USA00201

PATIENT
  Age: 40 Year
  Sex: Female
  Weight: 72 kg

DRUGS (2)
  1. FOSAMAX [Suspect]
     Indication: OSTEOPOROSIS
     Route: 048
     Dates: start: 20020101, end: 20060101
  2. [THERAPY UNSPECIFIED] [Concomitant]
     Route: 065
     Dates: start: 19940101

REACTIONS (19)
  - DENTAL CARIES [None]
  - DEPRESSED LEVEL OF CONSCIOUSNESS [None]
  - FATIGUE [None]
  - GASTRIC DISORDER [None]
  - GINGIVAL DISORDER [None]
  - HYPERAESTHESIA [None]
  - HYPOAESTHESIA [None]
  - IMPAIRED HEALING [None]
  - OBESITY [None]
  - ORAL DISORDER [None]
  - PAIN [None]
  - PERIODONTAL DISEASE [None]
  - SOMNOLENCE [None]
  - SWELLING [None]
  - TEMPOROMANDIBULAR JOINT SYNDROME [None]
  - TOOTH ABSCESS [None]
  - TOOTH LOSS [None]
  - TRISMUS [None]
  - WEIGHT INCREASED [None]
